FAERS Safety Report 14199944 (Version 1)
Quarter: 2017Q4

REPORT INFORMATION
  Report Type: Spontaneous
  Country: US (occurrence: US)
  Receive Date: 20171117
  Receipt Date: 20171117
  Transmission Date: 20180321
  Serious: No
  Sender: FDA-Public Use
  Company Number: US-BAUSCH-BL-2017-019473

PATIENT
  Age: 77 Year
  Sex: Male

DRUGS (5)
  1. MULTIVITAMIN [Concomitant]
     Active Substance: VITAMINS
     Indication: SUPPLEMENTATION THERAPY
     Route: 048
  2. METRONIDAZOLE. [Suspect]
     Active Substance: METRONIDAZOLE
     Indication: ROSACEA
     Route: 065
  3. METFORMIN [Suspect]
     Active Substance: METFORMIN HYDROCHLORIDE
     Indication: TYPE 2 DIABETES MELLITUS
     Dosage: AS NEEDED
     Route: 048
  4. PRESERVISION AREDS 2 FORMULA SOFT GELS [Suspect]
     Active Substance: MINERALS\VITAMINS
     Indication: DRY AGE-RELATED MACULAR DEGENERATION
     Route: 048
     Dates: end: 201704
  5. PRESERVISION AREDS 2 FORMULA SOFT GELS [Suspect]
     Active Substance: MINERALS\VITAMINS
     Dosage: ONE IN THE MORNING AND ONE IN THE AFTERNOON
     Route: 048

REACTIONS (6)
  - Anxiety [Recovered/Resolved]
  - Stress [Recovered/Resolved]
  - Rosacea [Unknown]
  - Motion sickness [Recovered/Resolved]
  - Headache [Recovered/Resolved]
  - Panic attack [Unknown]

NARRATIVE: CASE EVENT DATE: 2017
